FAERS Safety Report 23649391 (Version 2)
Quarter: 2024Q2

REPORT INFORMATION
  Report Type: Spontaneous
  Country: FR (occurrence: FR)
  Receive Date: 20240319
  Receipt Date: 20240422
  Transmission Date: 20240716
  Serious: Yes (Other)
  Sender: FDA-Public Use
  Company Number: None

PATIENT
  Age: 72 Year
  Sex: Female
  Weight: 102 kg

DRUGS (44)
  1. KEYTRUDA [Suspect]
     Active Substance: PEMBROLIZUMAB
     Indication: Invasive ductal breast carcinoma
     Dosage: 200 MILLIGRAM, CYCLICAL; CONCENTRATION: 25 MG/ML
     Route: 042
     Dates: start: 20240111, end: 20240111
  2. KEYTRUDA [Suspect]
     Active Substance: PEMBROLIZUMAB
     Dosage: 200 MILLIGRAM, CYCLICAL; CONCENTRATION: 25 MG/ML
     Route: 042
     Dates: start: 20240201, end: 20240201
  3. PACLITAXEL [Suspect]
     Active Substance: PACLITAXEL
     Indication: Invasive ductal breast carcinoma
     Dosage: 156 MILLIGRAM, CYCLICAL (C1J1); CONCENTRATION: 6 MG/ML
     Route: 042
     Dates: start: 20240111, end: 20240111
  4. PACLITAXEL [Suspect]
     Active Substance: PACLITAXEL
     Dosage: 156 MILLIGRAM, CYCLICAL (C1J8); CONCENTRATION: 6 MG/ML
     Route: 042
     Dates: start: 20240118, end: 20240118
  5. PACLITAXEL [Suspect]
     Active Substance: PACLITAXEL
     Dosage: 156 MILLIGRAM, CYCLICAL (C1J15); CONCENTRATION: 6 MG/ML
     Route: 042
     Dates: start: 20240125, end: 20240125
  6. PACLITAXEL [Suspect]
     Active Substance: PACLITAXEL
     Dosage: 156 MILLIGRAM, CYCLICAL (C2J1); CONCENTRATION: 6 MG/ML
     Route: 042
     Dates: start: 20240201, end: 20240201
  7. PACLITAXEL [Suspect]
     Active Substance: PACLITAXEL
     Dosage: 156 MILLIGRAM, CYCLICAL (C2J8); CONCENTRATION: 6 MG/ML
     Route: 042
     Dates: start: 20240208, end: 20240208
  8. CARBOPLATIN [Suspect]
     Active Substance: CARBOPLATIN
     Indication: Invasive ductal breast carcinoma
     Dosage: 190 MILLIGRAM, CYCLICAL (AUC 1.5 C1J1); CONCENTRATION: 10 MG/ML
     Route: 042
     Dates: start: 20240111, end: 20240111
  9. CARBOPLATIN [Suspect]
     Active Substance: CARBOPLATIN
     Dosage: 190 MILLIGRAM, CYCLICAL (AUC 1.5 C1J8); CONCENTRATION: 10 MG/ML
     Route: 042
     Dates: start: 20240118, end: 20240118
  10. CARBOPLATIN [Suspect]
     Active Substance: CARBOPLATIN
     Dosage: 190 MILLIGRAM, CYCLICAL (AUC 1.5 C1J15); CONCENTRATION: 10 MG/ML
     Route: 042
     Dates: start: 20240125, end: 20240125
  11. CARBOPLATIN [Suspect]
     Active Substance: CARBOPLATIN
     Dosage: 190 MILLIGRAM, CYCLICAL (C2J1); CONCENTRATION: 10 MG/ML
     Route: 042
     Dates: start: 20240201, end: 20240201
  12. CARBOPLATIN [Suspect]
     Active Substance: CARBOPLATIN
     Dosage: 190 MILLIGRAM, CYCLICAL (C2J8); CONCENTRATION: 10 MG/ML
     Route: 042
     Dates: start: 20240208, end: 20240208
  13. DEXCHLORPHENIRAMINE MALEATE [Concomitant]
     Active Substance: DEXCHLORPHENIRAMINE MALEATE
     Indication: Prophylaxis of nausea and vomiting
     Dosage: 5 MILLIGRAM
     Route: 042
     Dates: start: 20240111, end: 20240111
  14. DEXCHLORPHENIRAMINE MALEATE [Concomitant]
     Active Substance: DEXCHLORPHENIRAMINE MALEATE
     Dosage: 5 MILLIGRAM
     Route: 042
     Dates: start: 20240118, end: 20240118
  15. DEXCHLORPHENIRAMINE MALEATE [Concomitant]
     Active Substance: DEXCHLORPHENIRAMINE MALEATE
     Dosage: 5 MILLIGRAM
     Route: 042
     Dates: start: 20240125, end: 20240125
  16. DEXCHLORPHENIRAMINE MALEATE [Concomitant]
     Active Substance: DEXCHLORPHENIRAMINE MALEATE
     Dosage: 5 MILLIGRAM
     Route: 042
     Dates: start: 20240201, end: 20240201
  17. DEXCHLORPHENIRAMINE MALEATE [Concomitant]
     Active Substance: DEXCHLORPHENIRAMINE MALEATE
     Dosage: 5 MILLIGRAM
     Route: 042
     Dates: start: 20240208, end: 20240208
  18. METOCLOPRAMIDE HYDROCHLORIDE [Concomitant]
     Active Substance: METOCLOPRAMIDE HYDROCHLORIDE
     Indication: Prophylaxis of nausea and vomiting
     Dosage: 10 MILLIGRAM, PRN
     Route: 048
     Dates: start: 20240111, end: 20240111
  19. PRAVASTATIN SODIUM [Concomitant]
     Active Substance: PRAVASTATIN SODIUM
     Indication: Diabetic dyslipidaemia
     Dosage: 30 MILLIGRAM
     Route: 048
  20. APREPITANT [Concomitant]
     Active Substance: APREPITANT
     Indication: Prophylaxis of nausea and vomiting
     Dosage: 125 MILLIGRAM
     Route: 048
     Dates: start: 20240111, end: 20240111
  21. APREPITANT [Concomitant]
     Active Substance: APREPITANT
     Dosage: 80 MILLIGRAM
     Route: 048
     Dates: start: 20240112, end: 20240113
  22. APREPITANT [Concomitant]
     Active Substance: APREPITANT
     Dosage: 125 MILLIGRAM
     Route: 048
     Dates: start: 20240118, end: 20240118
  23. APREPITANT [Concomitant]
     Active Substance: APREPITANT
     Dosage: 80 MILLIGRAM
     Route: 048
     Dates: start: 20240119, end: 20240120
  24. APREPITANT [Concomitant]
     Active Substance: APREPITANT
     Dosage: 125 MILLIGRAM
     Route: 048
     Dates: start: 20240125, end: 20240125
  25. APREPITANT [Concomitant]
     Active Substance: APREPITANT
     Dosage: 80 MILLIGRAM
     Route: 048
     Dates: start: 20240126, end: 20240127
  26. APREPITANT [Concomitant]
     Active Substance: APREPITANT
     Dosage: 125 MILLIGRAM
     Route: 048
     Dates: start: 20240201, end: 20240201
  27. APREPITANT [Concomitant]
     Active Substance: APREPITANT
     Dosage: 80 MILLIGRAM
     Route: 048
     Dates: start: 20240202, end: 20240203
  28. APREPITANT [Concomitant]
     Active Substance: APREPITANT
     Dosage: 125 MILLIGRAM
     Route: 048
     Dates: start: 20240208, end: 20240208
  29. APREPITANT [Concomitant]
     Active Substance: APREPITANT
     Dosage: 80 MILLIGRAM
     Route: 048
     Dates: start: 20240209, end: 20240210
  30. LERCANIDIPINE HYDROCHLORIDE [Concomitant]
     Active Substance: LERCANIDIPINE HYDROCHLORIDE
     Indication: Hypertension
     Dosage: 10 MILLIGRAM
     Route: 048
  31. SITAGLIPTIN PHOSPHATE [Concomitant]
     Active Substance: SITAGLIPTIN PHOSPHATE
     Indication: Type 2 diabetes mellitus
     Dosage: 100 MILLIGRAM
     Route: 048
  32. DEXAMETHASONE [Concomitant]
     Active Substance: DEXAMETHASONE
     Indication: Prophylaxis of nausea and vomiting
     Dosage: 8 MILLIGRAM
     Route: 042
     Dates: start: 20240111, end: 20240111
  33. DEXAMETHASONE [Concomitant]
     Active Substance: DEXAMETHASONE
     Dosage: 8 MILLIGRAM
     Route: 042
     Dates: start: 20240118, end: 20240118
  34. DEXAMETHASONE [Concomitant]
     Active Substance: DEXAMETHASONE
     Dosage: 8 MILLIGRAM
     Route: 042
     Dates: start: 20240125, end: 20240125
  35. DEXAMETHASONE [Concomitant]
     Active Substance: DEXAMETHASONE
     Dosage: 8 MILLIGRAM
     Route: 042
     Dates: start: 20240201, end: 20240201
  36. DEXAMETHASONE [Concomitant]
     Active Substance: DEXAMETHASONE
     Dosage: 8 MILLIGRAM
     Route: 042
     Dates: start: 20240208, end: 20240208
  37. LEVOTHYROXINE [Concomitant]
     Active Substance: LEVOTHYROXINE\LEVOTHYROXINE SODIUM
     Indication: Hypothyroidism
     Dosage: 125 MICROGRAM
     Route: 048
  38. ESOMEPRAZOLE [Concomitant]
     Active Substance: ESOMEPRAZOLE
     Indication: Product used for unknown indication
     Dosage: 40 MILLIGRAM
     Route: 048
  39. ONDANSETRON [Concomitant]
     Active Substance: ONDANSETRON
     Indication: Prophylaxis of nausea and vomiting
     Dosage: 8 MILLIGRAM, BID
     Route: 048
     Dates: start: 20240111, end: 20240111
  40. ONDANSETRON [Concomitant]
     Active Substance: ONDANSETRON
     Dosage: 8 MILLIGRAM, BID
     Route: 048
     Dates: start: 20240118, end: 20240118
  41. ONDANSETRON [Concomitant]
     Active Substance: ONDANSETRON
     Dosage: 8 MILLIGRAM, BID
     Route: 048
     Dates: start: 20240125, end: 20240125
  42. ONDANSETRON [Concomitant]
     Active Substance: ONDANSETRON
     Dosage: 8 MILLIGRAM, BID
     Route: 048
     Dates: start: 20240201, end: 20240201
  43. ONDANSETRON [Concomitant]
     Active Substance: ONDANSETRON
     Dosage: 8 MILLIGRAM, BID
     Route: 048
     Dates: start: 20240208, end: 20240208
  44. CHOLECALCIFEROL [Concomitant]
     Active Substance: CHOLECALCIFEROL
     Indication: Vitamin supplementation
     Dosage: 5000 INTERNATIONAL UNIT
     Route: 048

REACTIONS (1)
  - Hepatic cytolysis [Recovering/Resolving]

NARRATIVE: CASE EVENT DATE: 20240130
